FAERS Safety Report 11320941 (Version 1)
Quarter: 2015Q3

REPORT INFORMATION
  Report Type: Spontaneous
  Country: US (occurrence: None)
  Receive Date: 20150728
  Receipt Date: 20150728
  Transmission Date: 20151125
  Serious: Yes (Other)
  Sender: FDA-Public Use
  Company Number: None

PATIENT
  Age: 56 Year
  Sex: Male

DRUGS (1)
  1. DULOXETINE. [Suspect]
     Active Substance: DULOXETINE
     Indication: AFFECTIVE DISORDER
     Route: 048
     Dates: start: 20150629, end: 20150724

REACTIONS (4)
  - Headache [None]
  - Hypertension [None]
  - Photopsia [None]
  - Disturbance in attention [None]

NARRATIVE: CASE EVENT DATE: 20150724
